FAERS Safety Report 9217536 (Version 2)
Quarter: 2013Q2

REPORT INFORMATION
  Report Type: Spontaneous
  Country: US (occurrence: US)
  Receive Date: 20130408
  Receipt Date: 20130422
  Transmission Date: 20140414
  Serious: Yes (Hospitalization)
  Sender: FDA-Public Use
  Company Number: US-ALEXION-A201300510

PATIENT
  Age: 11 Year
  Sex: Female

DRUGS (9)
  1. SOLIRIS 300MG [Suspect]
     Indication: HAEMOLYTIC URAEMIC SYNDROME
     Dosage: 900 MG, QW X 5
     Route: 042
     Dates: start: 201301
  2. SOLIRIS 300MG [Suspect]
     Dosage: 900 MG, Q2W
     Route: 042
  3. SOLIRIS 300MG [Suspect]
     Dosage: 1200 MG, QW
     Route: 042
     Dates: start: 201303
  4. PREDNISONE [Concomitant]
     Indication: HAEMOLYTIC URAEMIC SYNDROME
     Dosage: 60 MG, QD
     Route: 048
  5. OMEPRAZOLE [Concomitant]
     Dosage: 20 MG, QD
     Route: 048
  6. LASIX [Concomitant]
     Dosage: 80 MG, QD
     Route: 048
  7. HYDROCHLOROTHIAZIDE [Concomitant]
     Dosage: 25 MG, BID
     Route: 048
  8. ALDACTONE [Concomitant]
     Dosage: 25 MG, BID
     Route: 048
  9. CALCIUM + VITAMIN D [Concomitant]
     Dosage: UNK

REACTIONS (5)
  - Catheter site haemorrhage [Recovered/Resolved]
  - Platelet count decreased [Recovered/Resolved]
  - Weight increased [Recovered/Resolved]
  - Haemolytic uraemic syndrome [Recovering/Resolving]
  - Disease recurrence [Recovering/Resolving]
